FAERS Safety Report 17812979 (Version 6)
Quarter: 2025Q1

REPORT INFORMATION
  Report Type: Spontaneous
  Country: FI (occurrence: FI)
  Receive Date: 20200521
  Receipt Date: 20250102
  Transmission Date: 20250409
  Serious: Yes (Other)
  Sender: MYLAN
  Company Number: FI-MYLANLABS-2020M1049904

PATIENT
  Age: 74 Year
  Sex: Female

DRUGS (22)
  1. BUDESONIDE [Interacting]
     Active Substance: BUDESONIDE
     Indication: Asthma
     Dosage: 1.2 MILLIGRAM, QD
     Route: 055
     Dates: start: 2011, end: 201906
  2. BUDESONIDE [Interacting]
     Active Substance: BUDESONIDE
     Route: 055
     Dates: start: 201906
  3. VERAPAMIL [Interacting]
     Active Substance: VERAPAMIL HYDROCHLORIDE
     Indication: Hypertension
     Dosage: 200 MILLIGRAM, BID
     Route: 048
     Dates: start: 2012, end: 2018
  4. FLUCONAZOLE [Suspect]
     Active Substance: FLUCONAZOLE
     Indication: Candida infection
     Dosage: 100 MILLIGRAM, QOD,(EVERY 2ND DAY)
     Route: 065
     Dates: start: 2005
  5. FLUCONAZOLE [Suspect]
     Active Substance: FLUCONAZOLE
     Indication: Prophylaxis
     Dosage: 100 MILLIGRAM, QD
     Route: 065
     Dates: start: 2005
  6. FLUCONAZOLE [Suspect]
     Active Substance: FLUCONAZOLE
     Indication: Antifungal prophylaxis
  7. FLUCONAZOLE [Suspect]
     Active Substance: FLUCONAZOLE
     Indication: Oral candidiasis
  8. BUDESONIDE\FORMOTEROL [Interacting]
     Active Substance: BUDESONIDE\FORMOTEROL
     Indication: Asthma
     Dosage: 1.2 MILLIGRAM, QD
     Route: 055
     Dates: start: 2011, end: 201906
  9. BUDESONIDE\FORMOTEROL [Interacting]
     Active Substance: BUDESONIDE\FORMOTEROL
     Route: 055
     Dates: start: 201906
  10. PREDNISONE [Suspect]
     Active Substance: PREDNISONE
     Indication: Medical device site inflammation
     Dosage: 5 MILLIGRAM, QD
     Route: 048
     Dates: start: 2005, end: 2014
  11. PREDNISONE [Suspect]
     Active Substance: PREDNISONE
     Indication: Hip arthroplasty
     Dosage: 25 MILLIGRAM, QD
     Route: 048
     Dates: start: 2017, end: 2017
  12. PREDNISONE [Suspect]
     Active Substance: PREDNISONE
     Indication: Rheumatoid arthritis
     Dosage: 5 MILLIGRAM, QD
     Route: 048
     Dates: start: 2017, end: 2018
  13. PREDNISONE [Suspect]
     Active Substance: PREDNISONE
     Indication: Chondrocalcinosis
     Route: 048
     Dates: start: 2005, end: 2014
  14. PREDNISONE [Suspect]
     Active Substance: PREDNISONE
     Indication: Arthritis
  15. MONTELUKAST [Concomitant]
     Active Substance: MONTELUKAST
     Indication: Asthma
     Dosage: 10 MILLIGRAM, QD
     Route: 065
     Dates: start: 2011
  16. CANDESARTAN [Concomitant]
     Active Substance: CANDESARTAN
     Indication: Hypertension
     Dosage: 16 MILLIGRAM, QD
     Route: 065
  17. CANDESARTAN [Concomitant]
     Active Substance: CANDESARTAN
     Route: 065
  18. HYDROCHLOROTHIAZIDE [Concomitant]
     Active Substance: HYDROCHLOROTHIAZIDE
     Indication: Hypertension
     Dosage: 12.5 MILLIGRAM, QD
     Route: 065
  19. HYDROCORTISONE [Concomitant]
     Active Substance: HYDROCORTISONE
     Indication: Chondrocalcinosis
     Dosage: 15 MILLIGRAM, QD,(10-15 MG/DAILY)
     Route: 065
     Dates: start: 2018
  20. HYDROCORTISONE [Concomitant]
     Active Substance: HYDROCORTISONE
     Indication: Rheumatoid arthritis
  21. HYDROCORTISONE [Concomitant]
     Active Substance: HYDROCORTISONE
     Indication: Adrenal suppression
  22. FORMOTEROL [Concomitant]
     Active Substance: FORMOTEROL
     Indication: Asthma
     Route: 065

REACTIONS (9)
  - Rheumatoid arthritis [Unknown]
  - Inhibitory drug interaction [Unknown]
  - Drug interaction [Not Recovered/Not Resolved]
  - Adrenal insufficiency [Unknown]
  - Osteoporosis [Not Recovered/Not Resolved]
  - Bone density decreased [Not Recovered/Not Resolved]
  - Blood calcium increased [Unknown]
  - Chondrocalcinosis [Unknown]
  - Cortisol decreased [Not Recovered/Not Resolved]

NARRATIVE: CASE EVENT DATE: 20110101
